FAERS Safety Report 5875941-9 (Version None)
Quarter: 2008Q3

REPORT INFORMATION
  Report Type: 
  Country: None (occurrence: None)
  Receive Date: 20080910
  Receipt Date: 20080828
  Transmission Date: 20090109
  Serious: Yes (Hospitalization)
  Sender: FDA-Public Use
  Company Number: JP-JNJFOC-20080805798

PATIENT
  Age: 64 Year
  Sex: Female

DRUGS (3)
  1. LOPEMIN [Suspect]
     Indication: DIARRHOEA
     Route: 048
  2. ZOLPIDEM TARTRATE [Concomitant]
     Route: 048
  3. ANTI-TUMOR DRUG [Concomitant]

REACTIONS (1)
  - LIVER FUNCTION TEST ABNORMAL [None]
